FAERS Safety Report 5083418-6 (Version None)
Quarter: 2006Q3

REPORT INFORMATION
  Report Type: 
  Country: None (occurrence: None)
  Receive Date: 20060816
  Receipt Date: 20060801
  Transmission Date: 20061208
  Serious: Yes (Death)
  Sender: FDA-Public Use
  Company Number: 2006-BP-08787RO

PATIENT
  Age: 58 Year
  Sex: Male

DRUGS (8)
  1. PREDNISONE TABLETS USP, 5MG (PREDNISONE) [Suspect]
     Indication: PROSTATE CANCER METASTATIC
     Dosage: 10 MG, PO
     Route: 048
     Dates: start: 20051202, end: 20060502
  2. MITOXANTRONE [Suspect]
     Indication: PROSTATE CANCER METASTATIC
     Dosage: 12 MG.M^2 (26 MG) EVERY THREE WEEKS, 1 IN 3 WK, IV
     Route: 042
     Dates: start: 20051205, end: 20060502
  3. ZOLOFT [Concomitant]
  4. PHENERGAN [Concomitant]
  5. PERCOCET [Concomitant]
  6. TEMAZEPAM [Concomitant]
  7. OXYCONTIN [Concomitant]
  8. NAPROSYN [Concomitant]

REACTIONS (2)
  - MALIGNANT NEOPLASM PROGRESSION [None]
  - PROSTATE CANCER METASTATIC [None]
